FAERS Safety Report 14343855 (Version 1)
Quarter: 2017Q4

REPORT INFORMATION
  Report Type: Spontaneous
  Country: US (occurrence: US)
  Receive Date: 20171229
  Receipt Date: 20171229
  Transmission Date: 20180321
  Serious: Yes (Death)
  Sender: FDA-Public Use
  Company Number: None

PATIENT
  Age: 56 Year
  Sex: Male

DRUGS (1)
  1. TOBRAMYCIN 300MG SANDOZ [Suspect]
     Active Substance: TOBRAMYCIN
     Indication: HEPATITIS B
     Dosage: 300MG TWICE DAILY FOR 14 DAYS NEBULIZER
     Dates: start: 20170531, end: 20171125

REACTIONS (1)
  - Lung infection [None]

NARRATIVE: CASE EVENT DATE: 20171128
